FAERS Safety Report 5080385-6 (Version None)
Quarter: 2006Q3

REPORT INFORMATION
  Report Type: 
  Country: None (occurrence: None)
  Receive Date: 20060815
  Receipt Date: 20060803
  Transmission Date: 20061208
  Serious: Yes (Other)
  Sender: FDA-Public Use
  Company Number: US-ROCHE-458339

PATIENT
  Age: 66 Year
  Sex: Female

DRUGS (3)
  1. BONIVA [Suspect]
     Indication: OSTEOPOROSIS
     Route: 065
     Dates: start: 20060115
  2. LIPITOR [Concomitant]
  3. UNSPECIFIED DRUG [Concomitant]
     Dosage: TRADE NAME REPORTED AS TOPOROL.

REACTIONS (7)
  - ABDOMINAL PAIN [None]
  - CHEST PAIN [None]
  - DIARRHOEA [None]
  - DYSPEPSIA [None]
  - ELECTROCARDIOGRAM CHANGE [None]
  - PAIN IN EXTREMITY [None]
  - SPINAL DISORDER [None]
